FAERS Safety Report 4866972-6 (Version None)
Quarter: 2005Q4

REPORT INFORMATION
  Report Type: 
  Country: None (occurrence: None)
  Receive Date: 20051222
  Receipt Date: 20051212
  Transmission Date: 20060501
  Serious: Yes (Other)
  Sender: FDA-Public Use
  Company Number: B0403483A

PATIENT

DRUGS (1)
  1. LITHIUM SALT  (LITHIUM SALT)          (GENERIC) [Suspect]

REACTIONS (3)
  - CARDIAC FAILURE [None]
  - HAEMODYNAMIC INSTABILITY [None]
  - MYOCARDIAL INFARCTION [None]
